FAERS Safety Report 14305206 (Version 5)
Quarter: 2018Q1

REPORT INFORMATION
  Report Type: Spontaneous
  Country: US (occurrence: US)
  Receive Date: 20171219
  Receipt Date: 20180315
  Transmission Date: 20180509
  Serious: Yes (Hospitalization, Other)
  Sender: FDA-Public Use
  Company Number: US-PFIZER INC-2017534838

PATIENT
  Age: 48 Year
  Sex: Female
  Weight: 81.65 kg

DRUGS (1)
  1. VENLAFAXINE HCL [Suspect]
     Active Substance: VENLAFAXINE HYDROCHLORIDE
     Indication: DEPRESSION
     Dosage: 150 MG, 1X/DAY
     Route: 048
     Dates: start: 2010, end: 2010

REACTIONS (11)
  - Suicide attempt [Unknown]
  - Disease recurrence [Unknown]
  - Suicidal ideation [Recovered/Resolved]
  - Depression [Recovered/Resolved]
  - Suicidal behaviour [Recovered/Resolved]
  - Therapeutic response changed [Recovered/Resolved]
  - Drug ineffective [Recovered/Resolved]
  - Tachyphrenia [Unknown]
  - Condition aggravated [Recovered/Resolved]
  - Negative thoughts [Not Recovered/Not Resolved]
  - Crying [Unknown]

NARRATIVE: CASE EVENT DATE: 2010
